FAERS Safety Report 22012917 (Version 1)
Quarter: 2023Q1

REPORT INFORMATION
  Report Type: Spontaneous
  Country: US (occurrence: US)
  Receive Date: 20230220
  Receipt Date: 20230220
  Transmission Date: 20230418
  Serious: Yes (Other)
  Sender: FDA-Public Use
  Company Number: US-BAUSCHBL-2023BNL001207

PATIENT
  Age: 13 Year
  Sex: Female

DRUGS (4)
  1. DEXAMETHASONE [Suspect]
     Active Substance: DEXAMETHASONE
     Indication: Nausea
     Route: 065
  2. OLAPARIB [Concomitant]
     Active Substance: OLAPARIB
     Indication: Gastrointestinal stromal tumour
  3. TEMOZOLOMIDE [Concomitant]
     Active Substance: TEMOZOLOMIDE
     Indication: Gastrointestinal stromal tumour
  4. TEMOZOLOMIDE [Concomitant]
     Active Substance: TEMOZOLOMIDE
     Dosage: DOSE REDUCED

REACTIONS (1)
  - Substance-induced psychotic disorder [Unknown]
